FAERS Safety Report 5150887-2 (Version None)
Quarter: 2006Q4

REPORT INFORMATION
  Report Type: 
  Country: None (occurrence: None)
  Receive Date: 20061114
  Receipt Date: 20061103
  Transmission Date: 20070319
  Serious: Yes (Hospitalization)
  Sender: FDA-Public Use
  Company Number: FR-ELI_LILLY_AND_COMPANY-FR200611000714

PATIENT
  Age: 66 Year
  Sex: Male

DRUGS (1)
  1. GEMZAR [Suspect]
     Indication: BILE DUCT CANCER
     Dosage: UNK, UNKNOWN
     Route: 042
     Dates: start: 20050901, end: 20060516

REACTIONS (5)
  - ARTERIAL THROMBOSIS LIMB [None]
  - DERMATITIS BULLOUS [None]
  - LIVEDO RETICULARIS [None]
  - SKIN NECROSIS [None]
  - SNEDDON'S SYNDROME [None]
